FAERS Safety Report 8986646 (Version 1)
Quarter: 2012Q4

REPORT INFORMATION
  Report Type: Spontaneous
  Country: US (occurrence: None)
  Receive Date: 20121219
  Receipt Date: 20121219
  Transmission Date: 20130627
  Serious: Yes (Hospitalization)
  Sender: FDA-Public Use
  Company Number: None

PATIENT
  Age: 72 Year
  Sex: Male
  Weight: 77 kg

DRUGS (2)
  1. MIRAPEX [Suspect]
     Route: 048
  2. TEMAZEPAM [Suspect]
     Dosage: 30mg  at bedtime po
     Route: 048

REACTIONS (1)
  - Swelling face [None]
